FAERS Safety Report 9862982 (Version 1)
Quarter: 2014Q1

REPORT INFORMATION
  Report Type: Report from Study
  Country: US (occurrence: US)
  Receive Date: 20140203
  Receipt Date: 20140203
  Transmission Date: 20141002
  Serious: Yes (Other)
  Sender: FDA-Public Use
  Company Number: US-ROCHE-1340280

PATIENT
  Sex: Male
  Weight: 59.02 kg

DRUGS (2)
  1. NUTROPIN [Suspect]
     Indication: BODY HEIGHT BELOW NORMAL
     Dosage: NUTROPIN NUSPIN 10 MG
     Route: 058
     Dates: end: 20131021
  2. NUTROPIN [Suspect]
     Route: 058
     Dates: start: 20131021

REACTIONS (2)
  - Insulin-like growth factor increased [Unknown]
  - Injection site bruising [Unknown]
